FAERS Safety Report 12247377 (Version 1)
Quarter: 2016Q2

REPORT INFORMATION
  Report Type: Report from Study
  Country: BR (occurrence: BR)
  Receive Date: 20160407
  Receipt Date: 20160407
  Transmission Date: 20160815
  Serious: Yes (Hospitalization)
  Sender: FDA-Public Use
  Company Number: BR-ABBVIE-16K-020-1597919-00

PATIENT
  Age: 51 Year
  Sex: Male
  Weight: 96 kg

DRUGS (5)
  1. FAMOTIDINE. [Concomitant]
     Active Substance: FAMOTIDINE
     Indication: ARTHRITIS
     Route: 048
     Dates: start: 201601
  2. LOSARTAN. [Concomitant]
     Active Substance: LOSARTAN
     Indication: HYPERTENSION
     Route: 048
     Dates: start: 201602
  3. BENZOBROMARONA [Concomitant]
     Indication: ARTHRITIS
     Route: 048
     Dates: start: 201601
  4. HUMIRA [Suspect]
     Active Substance: ADALIMUMAB
     Indication: PSORIATIC ARTHROPATHY
     Route: 058
     Dates: start: 20160305
  5. PHENYLBUTAZONE [Concomitant]
     Active Substance: PHENYLBUTAZONE
     Indication: ARTHRITIS
     Route: 048
     Dates: start: 201601

REACTIONS (4)
  - Pain [Recovering/Resolving]
  - Rhinitis [Recovered/Resolved]
  - Nasal congestion [Recovering/Resolving]
  - Rhinitis [Recovering/Resolving]

NARRATIVE: CASE EVENT DATE: 20160305
